FAERS Safety Report 9057481 (Version 3)
Quarter: 2013Q1

REPORT INFORMATION
  Report Type: Spontaneous
  Country: JP (occurrence: JP)
  Receive Date: 20130204
  Receipt Date: 20130304
  Transmission Date: 20140127
  Serious: Yes (Other)
  Sender: FDA-Public Use
  Company Number: JP-PFIZER INC-2013044124

PATIENT
  Age: 44 Year
  Sex: Male
  Weight: 60 kg

DRUGS (2)
  1. FOSPHENYTOIN SODIUM [Suspect]
     Indication: STATUS EPILEPTICUS
     Dosage: 22.5 MG/KG AT  1350 MG/ 9 MIN UNK
     Dates: start: 20121030, end: 20121030
  2. FOSPHENYTOIN SODIUM [Suspect]
     Dosage: 7.5 MG/KG, 450 MG/ 7 MIN 30 SEC UNK
     Dates: start: 20121031, end: 20121031

REACTIONS (6)
  - Wrong technique in drug usage process [Recovered/Resolved]
  - Blood pressure decreased [Recovered/Resolved]
  - Blood pressure decreased [Recovered/Resolved]
  - Nystagmus [Recovered/Resolved]
  - Nystagmus [Recovered/Resolved]
  - Restlessness [Unknown]
